FAERS Safety Report 14459844 (Version 1)
Quarter: 2018Q1

REPORT INFORMATION
  Report Type: Spontaneous
  Country: US (occurrence: US)
  Receive Date: 20180129
  Receipt Date: 20180129
  Transmission Date: 20180509
  Serious: Yes (Other)
  Sender: FDA-Public Use
  Company Number: None

PATIENT
  Age: 73 Year
  Sex: Male
  Weight: 85.5 kg

DRUGS (2)
  1. BRILINTA [Suspect]
     Active Substance: TICAGRELOR
     Indication: ANGIOPLASTY
     Dosage: ?          QUANTITY:60 TABLET(S);?
     Route: 048
     Dates: start: 20171219, end: 20171221
  2. CARVEDILOL. [Suspect]
     Active Substance: CARVEDILOL
     Indication: ANGIOPLASTY
     Dosage: ?          QUANTITY:60 TABLET(S);?
     Route: 048
     Dates: start: 20171219, end: 20171221

REACTIONS (3)
  - Insomnia [None]
  - Nasopharyngitis [None]
  - Dyspnoea [None]

NARRATIVE: CASE EVENT DATE: 20171221
